FAERS Safety Report 7825758-0 (Version None)
Quarter: 2011Q4

REPORT INFORMATION
  Report Type: 
  Country: None (occurrence: None)
  Receive Date: 20111019
  Receipt Date: 20111013
  Transmission Date: 20120403
  Serious: Yes (Other)
  Sender: FDA-Public Use
  Company Number: PHEH2011US06861

PATIENT
  Sex: Female
  Weight: 56.689 kg

DRUGS (2)
  1. RECLAST [Suspect]
     Indication: OSTEOPENIA
     Dosage: 5 MG, YEARLY
     Route: 042
     Dates: start: 20111005
  2. IBUPROFEN [Suspect]
     Dosage: 1 DF(400-600 MG), TID

REACTIONS (12)
  - ARTHRALGIA [None]
  - COLD SWEAT [None]
  - HYPERSOMNIA [None]
  - FEELING ABNORMAL [None]
  - PAIN [None]
  - NEPHROPATHY TOXIC [None]
  - HEADACHE [None]
  - JOINT SWELLING [None]
  - JOINT STIFFNESS [None]
  - CHILLS [None]
  - ASTHENIA [None]
  - NAUSEA [None]
